FAERS Safety Report 5290664-5 (Version None)
Quarter: 2007Q2

REPORT INFORMATION
  Report Type: 
  Country: None (occurrence: None)
  Receive Date: 20070405
  Receipt Date: 20070405
  Transmission Date: 20071010
  Serious: Yes (Hospitalization)
  Sender: FDA-Public Use
  Company Number: None

PATIENT
  Sex: Male
  Weight: 95.7 kg

DRUGS (11)
  1. MYCOPHENOLATE MOFETIL [Suspect]
     Indication: TRANSPLANT
     Dosage: 500MG  PO  BID
     Route: 048
     Dates: start: 20051108, end: 20061228
  2. DOCUSATE [Concomitant]
  3. ATORVASTATIN CALCIUM [Concomitant]
  4. FUROSEMIDE [Concomitant]
  5. RANITIDINE [Concomitant]
  6. METOPROLOL SUCCINATE [Concomitant]
  7. LANSOPRAZOLE [Concomitant]
  8. NIFEDIPINE [Concomitant]
  9. TACROLIMUS [Concomitant]
  10. CLONIDINE [Concomitant]
  11. ACYCLOVIR [Concomitant]

REACTIONS (1)
  - DIARRHOEA [None]
